FAERS Safety Report 9293887 (Version 1)
Quarter: 2013Q1

REPORT INFORMATION
  Report Type: Spontaneous
  Country: US (occurrence: None)
  Receive Date: 20121214
  Receipt Date: 20121214
  Transmission Date: 20140127
  Serious: Yes (Other)
  Sender: FDA-Public Use
  Company Number: 1208USA011099

PATIENT
  Sex: 0

DRUGS (3)
  1. JANUVIA [Suspect]
     Indication: TYPE 2 DIABETES MELLITUS
     Route: 048
     Dates: start: 201108
  2. LISINOPRIL (LISINOPRIL) [Concomitant]
  3. TOPROL XL TABLETS (METOPROLOL SUCCINATE) [Concomitant]

REACTIONS (1)
  - Pancreatitis acute [None]
